FAERS Safety Report 6398396-7 (Version None)
Quarter: 2009Q4

REPORT INFORMATION
  Report Type: 
  Country: None (occurrence: None)
  Receive Date: 20091013
  Receipt Date: 20091002
  Transmission Date: 20100525
  Serious: Yes (Death)
  Sender: FDA-Public Use
  Company Number: TW-BAXTER-2009BH015116

PATIENT
  Age: 68 Year
  Sex: Female

DRUGS (6)
  1. DIANEAL [Suspect]
     Indication: PERITONEAL DIALYSIS
     Route: 033
  2. DIANEAL [Suspect]
     Route: 033
  3. DIANEAL [Suspect]
     Indication: PERITONEAL DIALYSIS
     Route: 033
     Dates: start: 20090701
  4. DIANEAL [Suspect]
     Route: 033
     Dates: start: 20090701
  5. EXTRANEAL [Suspect]
     Indication: PERITONEAL DIALYSIS
     Route: 033
     Dates: start: 20090701
  6. EXTRANEAL [Suspect]
     Route: 033
     Dates: start: 20090701

REACTIONS (1)
  - DIABETIC FOOT [None]
